FAERS Safety Report 23630934 (Version 1)
Quarter: 2024Q1

REPORT INFORMATION
  Report Type: Spontaneous
  Country: ES (occurrence: ES)
  Receive Date: 20240314
  Receipt Date: 20240314
  Transmission Date: 20240410
  Serious: Yes (Other)
  Sender: FDA-Public Use
  Company Number: None

PATIENT
  Age: 51 Year
  Sex: Female

DRUGS (4)
  1. EMPAGLIFLOZIN\METFORMIN HYDROCHLORIDE [Suspect]
     Active Substance: EMPAGLIFLOZIN\METFORMIN HYDROCHLORIDE
     Indication: Type 2 diabetes mellitus
     Route: 048
     Dates: start: 20231218
  2. ENALAPRIL [Concomitant]
     Active Substance: ENALAPRIL
     Indication: Essential hypertension
     Route: 048
     Dates: start: 20230119
  3. LANTUS SOLOSTAR 100 UNIDADES/ML SOLUCION INYECTABLE EN PLUMA PRECARGA [Concomitant]
     Indication: Type 2 diabetes mellitus
     Route: 058
     Dates: start: 20231216
  4. LINAGLIPTIN [Concomitant]
     Active Substance: LINAGLIPTIN
     Indication: Type 2 diabetes mellitus
     Route: 048
     Dates: start: 20231212

REACTIONS (1)
  - New daily persistent headache [Recovered/Resolved]

NARRATIVE: CASE EVENT DATE: 20231230
